FAERS Safety Report 12030295 (Version 1)
Quarter: 2016Q1

REPORT INFORMATION
  Report Type: Report from Study
  Country: US (occurrence: US)
  Receive Date: 20160207
  Receipt Date: 20160207
  Transmission Date: 20160526
  Serious: No
  Sender: FDA-Public Use
  Company Number: US-ABBVIE-15K-163-1502377-00

PATIENT
  Age: 64 Year
  Sex: Female
  Weight: 81.65 kg

DRUGS (4)
  1. AMOXICILLIN. [Suspect]
     Active Substance: AMOXICILLIN
     Indication: INFECTION PROPHYLAXIS
     Dosage: 875/125MG ONE TABLET IN THE MORNING AND ONE AT NIGHT
     Route: 065
     Dates: start: 20151110, end: 20151119
  2. HUMIRA [Suspect]
     Active Substance: ADALIMUMAB
     Indication: RHEUMATOID ARTHRITIS
     Route: 058
     Dates: start: 20151030
  3. TYLENOL [Concomitant]
     Active Substance: ACETAMINOPHEN
     Indication: RHEUMATOID ARTHRITIS
  4. LEFLUNOMIDE. [Concomitant]
     Active Substance: LEFLUNOMIDE
     Indication: RHEUMATOID ARTHRITIS
     Dates: start: 201501

REACTIONS (11)
  - Sunburn [Unknown]
  - Skin exfoliation [Unknown]
  - Pruritus [Unknown]
  - Rash [Recovering/Resolving]
  - Pericardial effusion [Unknown]
  - Feeling abnormal [Recovered/Resolved]
  - Respiratory tract congestion [Unknown]
  - Pain [Recovered/Resolved]
  - Upper respiratory tract infection [Unknown]
  - Influenza [Recovered/Resolved]
  - Erythema [Unknown]

NARRATIVE: CASE EVENT DATE: 201510
